FAERS Safety Report 19151126 (Version 1)
Quarter: 2021Q2

REPORT INFORMATION
  Report Type: Spontaneous
  Country: JP (occurrence: JP)
  Receive Date: 20210419
  Receipt Date: 20210419
  Transmission Date: 20210717
  Serious: Yes (Other)
  Sender: FDA-Public Use
  Company Number: JP-AMGEN-JPNSP2021058066

PATIENT
  Sex: Male

DRUGS (3)
  1. NAVELBINE [Suspect]
     Active Substance: VINORELBINE TARTRATE
     Indication: LUNG NEOPLASM MALIGNANT
     Dosage: UNK (2 COURSES)
     Route: 041
     Dates: end: 202103
  2. G?LASTA [Suspect]
     Active Substance: PEGFILGRASTIM
     Indication: PRODUCT USED FOR UNKNOWN INDICATION
     Dosage: UNK (SECOND COURSE)
     Route: 058
     Dates: end: 202103
  3. CARBOPLATIN. [Concomitant]
     Active Substance: CARBOPLATIN
     Indication: LUNG NEOPLASM MALIGNANT
     Dosage: UNK (2 COURSES)
     Route: 041
     Dates: end: 202103

REACTIONS (3)
  - Neutropenia [Unknown]
  - Therapeutic procedure [Unknown]
  - Off label use [Unknown]
